FAERS Safety Report 8155724-X (Version None)
Quarter: 2012Q1

REPORT INFORMATION
  Report Type: 
  Country: None (occurrence: None)
  Receive Date: 20120222
  Receipt Date: 20120210
  Transmission Date: 20120608
  Serious: Yes (Death)
  Sender: FDA-Public Use
  Company Number: US-JNJFOC-20120207150

PATIENT
  Sex: Male
  Weight: 99.79 kg

DRUGS (2)
  1. PREDNISONE [Suspect]
     Indication: DIARRHOEA
     Route: 065
     Dates: start: 20110701
  2. REMICADE [Suspect]
     Indication: COLITIS ULCERATIVE
     Route: 042
     Dates: start: 20101101, end: 20120105

REACTIONS (4)
  - CHRONIC OBSTRUCTIVE PULMONARY DISEASE [None]
  - MYOCARDIAL INFARCTION [None]
  - WEIGHT INCREASED [None]
  - COLITIS ULCERATIVE [None]
